FAERS Safety Report 7250574-0 (Version None)
Quarter: 2011Q1

REPORT INFORMATION
  Report Type: 
  Country: None (occurrence: None)
  Receive Date: 20110121
  Receipt Date: 20110121
  Transmission Date: 20110831
  Serious: Yes (Hospitalization)
  Sender: FDA-Public Use
  Company Number: None

PATIENT
  Age: 57 Year
  Sex: Female
  Weight: 93 kg

DRUGS (4)
  1. CAPECITABINE [Suspect]
     Indication: BREAST CANCER
     Dosage: 500 MG/M2 PO Q 12 HOURS
     Route: 048
     Dates: start: 20110105, end: 20110114
  2. VICODIN [Concomitant]
  3. DECADRON [Suspect]
     Indication: METASTASES TO CENTRAL NERVOUS SYSTEM
     Dosage: 4 MG PO Q 6 HOURS
     Route: 048
     Dates: start: 20101231, end: 20110114
  4. IRBESARTAN-HCTZ [Concomitant]

REACTIONS (2)
  - DIABETIC KETOACIDOSIS [None]
  - BACTERAEMIA [None]
